FAERS Safety Report 21321980 (Version 1)
Quarter: 2022Q3

REPORT INFORMATION
  Report Type: Report from Study
  Country: US (occurrence: US)
  Receive Date: 20220912
  Receipt Date: 20220912
  Transmission Date: 20221027
  Serious: Yes (Hospitalization, Other)
  Sender: FDA-Public Use
  Company Number: US-BRISTOL-MYERS SQUIBB COMPANY-2022-099247

PATIENT
  Age: 26 Year
  Sex: Female
  Weight: 130.5 kg

DRUGS (3)
  1. ROMIDEPSIN [Suspect]
     Active Substance: ROMIDEPSIN
     Indication: Angioimmunoblastic T-cell lymphoma
     Dosage: EVERY 24 HOURS X 4
     Route: 042
     Dates: start: 20220630, end: 20220703
  2. TACROLIMUS [Concomitant]
     Active Substance: TACROLIMUS
     Indication: Prophylaxis
     Dosage: DAILY 1MG IN AM, 0.5 MG IN PM
     Route: 048
  3. BUDESONIDE [Concomitant]
     Active Substance: BUDESONIDE
     Indication: Prophylaxis
     Dosage: DAILY
     Route: 048

REACTIONS (1)
  - Clostridium difficile colitis [Recovering/Resolving]

NARRATIVE: CASE EVENT DATE: 20220826
